FAERS Safety Report 6070338-3 (Version None)
Quarter: 2009Q1

REPORT INFORMATION
  Report Type: 
  Country: None (occurrence: None)
  Receive Date: 20090203
  Receipt Date: 20090112
  Transmission Date: 20090719
  Serious: Yes (Other)
  Sender: FDA-Public Use
  Company Number: 2009S1000541

PATIENT
  Age: 39 Year
  Sex: Male

DRUGS (2)
  1. AMIODARONE (AMIODARONE) [Suspect]
     Indication: ATRIAL FIBRILLATION
  2. WARFARIN SODIUM [Suspect]
     Indication: THROMBOSIS PROPHYLAXIS

REACTIONS (9)
  - ANXIETY [None]
  - CLUBBING [None]
  - CYANOSIS [None]
  - DIARRHOEA [None]
  - DYSPNOEA [None]
  - GOITRE [None]
  - HYPERTHYROIDISM [None]
  - PALPITATIONS [None]
  - TREMOR [None]
